FAERS Safety Report 16040552 (Version 1)
Quarter: 2019Q1

REPORT INFORMATION
  Report Type: Spontaneous
  Country: US (occurrence: US)
  Receive Date: 20190306
  Receipt Date: 20190306
  Transmission Date: 20190418
  Serious: No
  Sender: FDA-Public Use
  Company Number: US-KYOWAKIRIN-2019BKK001939

PATIENT

DRUGS (15)
  1. LEVOTHROID/SYNTHROID [Concomitant]
     Indication: PRODUCT USED FOR UNKNOWN INDICATION
     Dosage: 100 UG, 1 TABLET BY MOUTH DAILY 30 MINUTES BEFORE BREAKFAST
     Route: 048
  2. FOLIC ACID. [Concomitant]
     Active Substance: FOLIC ACID
     Indication: PRODUCT USED FOR UNKNOWN INDICATION
     Dosage: 1 MG, 1 TABLET BY MOUTH DAILY AND THROUGH 30 DAYS AFTER COMPLETITION OF THERAPY
     Route: 048
  3. LIPITOR [Concomitant]
     Active Substance: ATORVASTATIN CALCIUM
     Indication: PRODUCT USED FOR UNKNOWN INDICATION
     Dosage: 40 MG, TABLET BY MOUTH DAILY
     Route: 048
  4. APAP [Concomitant]
     Active Substance: ACETAMINOPHEN
     Indication: PREMEDICATION
     Dosage: 650 MG
     Route: 048
  5. TEMOVATE [Concomitant]
     Active Substance: CLOBETASOL PROPIONATE
     Indication: RASH
     Dosage: APPLY TO AREAS OF RASH 1 TO 2 TIMES A DAY TO FACE/BODY
     Route: 061
  6. OMEGA-3 FATTY ACIDS [Concomitant]
     Active Substance: OMEGA-3 FATTY ACIDS
     Indication: PRODUCT USED FOR UNKNOWN INDICATION
     Dosage: 1000 MG, 1-2 CAPS FAILY WITH FOOD OVER THE COUNTER
     Route: 048
  7. ZOFRAN [Concomitant]
     Active Substance: ONDANSETRON HYDROCHLORIDE
     Indication: NAUSEA
     Dosage: 8 MG, 1 TABLET BY MOUTH EVERY 6 HOURS AS NEEDED
     Route: 048
  8. QVAR [Concomitant]
     Active Substance: BECLOMETHASONE DIPROPIONATE
     Indication: PRODUCT USED FOR UNKNOWN INDICATION
     Dosage: 80 UG, INHALE 2 PUFFS BY MOUTH 2 TIMES A DAY
     Route: 055
  9. CLARITIN [Concomitant]
     Active Substance: LORATADINE
     Indication: HYPERSENSITIVITY
     Dosage: 10 MG, 1 TAB DAILY PRN
     Route: 048
  10. FERROUS SULFATE. [Concomitant]
     Active Substance: FERROUS SULFATE
     Indication: PRODUCT USED FOR UNKNOWN INDICATION
     Dosage: 325 MG (65 MG IRON), 1 TAB BID OR AS DIRECTED
     Route: 048
  11. PRENATAL VITAMINS                  /07499601/ [Concomitant]
     Active Substance: VITAMINS
     Indication: PRODUCT USED FOR UNKNOWN INDICATION
     Dosage: 1 TABLEO, DAILY
     Route: 048
  12. DIPHENHYDRAMINE. [Concomitant]
     Active Substance: DIPHENHYDRAMINE
     Indication: PREMEDICATION
     Dosage: 50 MG
     Route: 042
  13. POTELIGEO [Suspect]
     Active Substance: MOGAMULIZUMAB-KPKC
     Indication: MYCOSIS FUNGOIDES
     Dosage: 1 MG/KG, WEEKLY (CYCLE 1)
     Route: 065
     Dates: start: 20181227, end: 20190124
  14. ZOFRAN [Concomitant]
     Active Substance: ONDANSETRON HYDROCHLORIDE
     Indication: VOMITING
  15. COZAAR [Concomitant]
     Active Substance: LOSARTAN POTASSIUM
     Indication: PRODUCT USED FOR UNKNOWN INDICATION
     Dosage: 25 MG, 1 TABLET BY MOUTH IN THE MORNING AND ONE AT BEDTIME
     Route: 048

REACTIONS (2)
  - Oedema peripheral [Unknown]
  - Abdominal distension [Unknown]
